FAERS Safety Report 24704180 (Version 1)
Quarter: 2024Q4

REPORT INFORMATION
  Report Type: Spontaneous
  Country: EC (occurrence: EC)
  Receive Date: 20241206
  Receipt Date: 20241206
  Transmission Date: 20250114
  Serious: Yes (Hospitalization, Other)
  Sender: ROCHE
  Company Number: EC-ROCHE-10000149831

PATIENT
  Age: 71 Year
  Sex: Male

DRUGS (6)
  1. TOCILIZUMAB [Suspect]
     Active Substance: TOCILIZUMAB
     Indication: COVID-19
     Route: 065
  2. IMIPENEM [Concomitant]
     Active Substance: IMIPENEM
  3. CILASTATIN [Concomitant]
     Active Substance: CILASTATIN
  4. LEVOFLOXACIN [Concomitant]
     Active Substance: LEVOFLOXACIN
  5. DEXAMETHASONE [Concomitant]
     Active Substance: DEXAMETHASONE
  6. SIMVASTATIN [Concomitant]
     Active Substance: SIMVASTATIN

REACTIONS (5)
  - Off label use [Unknown]
  - Trichosporon infection [Unknown]
  - Aspergillus infection [Unknown]
  - Klebsiella infection [Unknown]
  - Pseudomonas infection [Unknown]
